FAERS Safety Report 7274052-8 (Version None)
Quarter: 2011Q1

REPORT INFORMATION
  Report Type: 
  Country: None (occurrence: None)
  Receive Date: 20110203
  Receipt Date: 20110126
  Transmission Date: 20110831
  Serious: Yes (Other)
  Sender: FDA-Public Use
  Company Number: US-BRISTOL-MYERS SQUIBB COMPANY-15512379

PATIENT
  Age: 59 Year
  Sex: Male

DRUGS (1)
  1. ONGLYZA [Suspect]
     Dates: start: 20110101, end: 20110101

REACTIONS (1)
  - OPTIC NERVE INFARCTION [None]
